FAERS Safety Report 13335619 (Version 2)
Quarter: 2017Q3

REPORT INFORMATION
  Report Type: Report from Study
  Country: None (occurrence: BR)
  Receive Date: 20170314
  Receipt Date: 20170825
  Transmission Date: 20171127
  Serious: Yes (Other)
  Sender: FDA-Public Use
  Company Number: BR-ABBVIE-17P-020-1905564-00

PATIENT
  Sex: Male
  Weight: 60 kg

DRUGS (3)
  1. SYNTHROID [Suspect]
     Active Substance: LEVOTHYROXINE SODIUM
     Dosage: DAILY DOSE: 0.5 TABLET = 12.5 MCG MORNING/FASTING
     Route: 048
  2. FORMOTEROL FUMARATE / BUDESONIDE (FORASEQ) (NON-ABBOTT) [Concomitant]
     Indication: ASTHMA
     Dosage: EVERY DAY
  3. SYNTHROID [Suspect]
     Active Substance: LEVOTHYROXINE SODIUM
     Indication: HYPOTHYROIDISM
     Dosage: DAILY DOSE: 1TABLET = 50 MCG MORNING/FASTING
     Route: 048

REACTIONS (5)
  - Surgery [Unknown]
  - Sinusitis [Recovered/Resolved]
  - Rhinitis [Recovered/Resolved]
  - Adenoidectomy [Recovered/Resolved]
  - Inguinal hernia [Recovered/Resolved]

NARRATIVE: CASE EVENT DATE: 2002
